FAERS Safety Report 14223604 (Version 1)
Quarter: 2017Q4

REPORT INFORMATION
  Report Type: Spontaneous
  Country: IN (occurrence: IN)
  Receive Date: 20171125
  Receipt Date: 20171125
  Transmission Date: 20180321
  Serious: Yes (Hospitalization, Other)
  Sender: FDA-Public Use
  Company Number: IN-AMGEN-INDSP2017176591

PATIENT
  Age: 66 Year
  Sex: Male

DRUGS (1)
  1. VECTIBIX [Suspect]
     Active Substance: PANITUMUMAB
     Indication: COLORECTAL CANCER METASTATIC
     Dosage: 4 VIALS/100 MG
     Route: 042
     Dates: start: 20171015

REACTIONS (1)
  - Hepatectomy [Unknown]

NARRATIVE: CASE EVENT DATE: 201711
